FAERS Safety Report 8084584-0 (Version None)
Quarter: 2012Q1

REPORT INFORMATION
  Report Type: 
  Country: None (occurrence: None)
  Receive Date: 20120128
  Receipt Date: 20110323
  Transmission Date: 20120608
  Serious: No
  Sender: FDA-Public Use
  Company Number: US-ABBOTT-11P-163-0713484-00

PATIENT
  Sex: Female
  Weight: 71.732 kg

DRUGS (20)
  1. HUMIRA [Suspect]
     Dates: start: 20110201
  2. HUMIRA [Suspect]
     Indication: RHEUMATOID ARTHRITIS
     Dates: start: 20101201, end: 20110201
  3. DIAZEPAM [Concomitant]
     Indication: PRODUCT USED FOR UNKNOWN INDICATION
  4. VITAMIN D [Concomitant]
     Indication: PRODUCT USED FOR UNKNOWN INDICATION
  5. ALIGN [Concomitant]
     Indication: PRODUCT USED FOR UNKNOWN INDICATION
     Dosage: PROBIOTIC
  6. BACLOFEN [Concomitant]
     Indication: PRODUCT USED FOR UNKNOWN INDICATION
     Dosage: PAIN PUMP
  7. FENTANYL [Concomitant]
     Indication: PRODUCT USED FOR UNKNOWN INDICATION
     Dosage: PATCH
     Route: 062
  8. CENESTIN [Concomitant]
     Indication: HORMONE REPLACEMENT THERAPY
  9. AMITIZA [Concomitant]
     Indication: CONSTIPATION
     Dosage: INTESTIONAL DISORDER
  10. PRILOSEC [Concomitant]
     Indication: PRODUCT USED FOR UNKNOWN INDICATION
  11. IMURAN [Suspect]
  12. FENTANYL [Concomitant]
     Indication: PRODUCT USED FOR UNKNOWN INDICATION
     Dosage: PAIN PUMP
  13. BUPIVACAINE HCL [Concomitant]
     Indication: PRODUCT USED FOR UNKNOWN INDICATION
     Dosage: PAIN PUMP
  14. FOLIC ACID [Concomitant]
     Indication: PRODUCT USED FOR UNKNOWN INDICATION
  15. CLONIDINE [Concomitant]
     Indication: PRODUCT USED FOR UNKNOWN INDICATION
     Dosage: PAIN PUMP
  16. NEURONTIN [Concomitant]
     Indication: PRODUCT USED FOR UNKNOWN INDICATION
  17. LEVOTHYROXINE SODIUM [Concomitant]
     Indication: PRODUCT USED FOR UNKNOWN INDICATION
  18. COMPOUND CREAM [Concomitant]
     Indication: PAIN
     Dosage: PRN-KETAMINE, KLONIDINE, GABAPENTIN, IMPRAMINE
  19. STOOL SOFTNERS X3 [Concomitant]
     Indication: PRODUCT USED FOR UNKNOWN INDICATION
  20. IMURAN [Suspect]
     Indication: PRODUCT USED FOR UNKNOWN INDICATION

REACTIONS (8)
  - WHITE BLOOD CELL COUNT DECREASED [None]
  - WEIGHT INCREASED [None]
  - OEDEMA [None]
  - PAIN [None]
  - TOOTHACHE [None]
  - MUSCLE SPASMS [None]
  - GENERALISED OEDEMA [None]
  - MEMORY IMPAIRMENT [None]
